FAERS Safety Report 24030881 (Version 1)
Quarter: 2024Q2

REPORT INFORMATION
  Report Type: Report from Study
  Country: US (occurrence: US)
  Receive Date: 20240628
  Receipt Date: 20240628
  Transmission Date: 20240715
  Serious: Yes (Hospitalization)
  Sender: FDA-Public Use
  Company Number: US-Eisai-EC-2024-166859

PATIENT
  Age: 72 Year
  Sex: Male
  Weight: 111.5 kg

DRUGS (10)
  1. LENVIMA [Suspect]
     Active Substance: LENVATINIB
     Indication: Hepatic cancer
     Route: 048
     Dates: start: 20240524
  2. ASPIRIN [Concomitant]
     Active Substance: ASPIRIN
  3. LOSARTAN [Concomitant]
     Active Substance: LOSARTAN
  4. LUNESTA [Concomitant]
     Active Substance: ESZOPICLONE
  5. NIFEDIPINE [Concomitant]
     Active Substance: NIFEDIPINE
  6. OXYCODONE [Concomitant]
     Active Substance: OXYCODONE\OXYCODONE HYDROCHLORIDE
  7. SYNTHROID [Concomitant]
     Active Substance: LEVOTHYROXINE SODIUM
  8. TENORMIN [Concomitant]
     Active Substance: ATENOLOL
  9. ZOLOFT [Concomitant]
     Active Substance: SERTRALINE HYDROCHLORIDE
  10. PREDNISOLONE [Concomitant]
     Active Substance: PREDNISOLONE

REACTIONS (15)
  - Confusional state [Unknown]
  - Erythema [Unknown]
  - Blood pressure increased [Not Recovered/Not Resolved]
  - Dysphonia [Not Recovered/Not Resolved]
  - Fatigue [Not Recovered/Not Resolved]
  - Myalgia [Not Recovered/Not Resolved]
  - Bone pain [Not Recovered/Not Resolved]
  - Asthenia [Not Recovered/Not Resolved]
  - Hypomagnesaemia [Recovering/Resolving]
  - Hypokalaemia [Recovering/Resolving]
  - Pain [Not Recovered/Not Resolved]
  - Dysgeusia [Recovering/Resolving]
  - Lethargy [Not Recovered/Not Resolved]
  - Peripheral swelling [Recovering/Resolving]
  - Decreased appetite [Recovering/Resolving]

NARRATIVE: CASE EVENT DATE: 20240101
